FAERS Safety Report 9255139 (Version 1)
Quarter: 2013Q2

REPORT INFORMATION
  Report Type: Spontaneous
  Country: MA (occurrence: MA)
  Receive Date: 20130425
  Receipt Date: 20130425
  Transmission Date: 20140414
  Serious: Yes (Hospitalization)
  Sender: FDA-Public Use
  Company Number: MA-JNJFOC-20130412404

PATIENT
  Sex: 0

DRUGS (5)
  1. DOXORUBICIN [Suspect]
     Indication: NEOPLASM
     Dosage: AVERAGE DOSE: 55 MG/M2 (30-60 MG/M2)
     Route: 042
  2. EPIRUBICIN [Suspect]
     Indication: NEOPLASM
     Dosage: AVERAGE DOSE: 94 MG/M2 (50-100 MG/M2)
     Route: 065
  3. RADIOTHERAPY [Concomitant]
     Indication: NEOPLASM
     Route: 065
  4. CYCLOPHOSPHAMIDE [Concomitant]
     Indication: NEOPLASM
     Route: 065
  5. TRASTUZUMAB [Concomitant]
     Indication: NEOPLASM
     Route: 065

REACTIONS (3)
  - Myocardial infarction [Unknown]
  - Cardiomyopathy [Unknown]
  - Cardiotoxicity [Unknown]
